FAERS Safety Report 20580212 (Version 1)
Quarter: 2022Q1

REPORT INFORMATION
  Report Type: Report from Study
  Country: IN (occurrence: IN)
  Receive Date: 20220310
  Receipt Date: 20220310
  Transmission Date: 20220424
  Serious: Yes (Other)
  Sender: FDA-Public Use
  Company Number: IN-BRISTOL-MYERS SQUIBB COMPANY-BMS-2022-031757

PATIENT
  Age: 68 Year
  Sex: Female

DRUGS (1)
  1. APIXABAN [Suspect]
     Active Substance: APIXABAN
     Indication: Cerebrovascular accident prophylaxis
     Dosage: 2.5 MILLIGRAM, BID
     Route: 048
     Dates: start: 2020

REACTIONS (4)
  - Atrial fibrillation [Unknown]
  - Hypothyroidism [Unknown]
  - Dyspnoea exertional [Unknown]
  - Hypertension [Unknown]

NARRATIVE: CASE EVENT DATE: 20211203
